FAERS Safety Report 23386145 (Version 2)
Quarter: 2024Q1

REPORT INFORMATION
  Report Type: Report from Study
  Country: FR (occurrence: FR)
  Receive Date: 20240110
  Receipt Date: 20240117
  Transmission Date: 20240409
  Serious: Yes (Hospitalization, Other)
  Sender: FDA-Public Use
  Company Number: FR-CELLTRION INC.-2024FR000305

PATIENT

DRUGS (27)
  1. RITUXIMAB [Suspect]
     Active Substance: RITUXIMAB
     Indication: Diffuse large B-cell lymphoma stage III
     Dosage: UNK
     Route: 042
     Dates: start: 20231027, end: 20231027
  2. ETOPOSIDE [Suspect]
     Active Substance: ETOPOSIDE
     Indication: Diffuse large B-cell lymphoma stage III
     Dosage: CYCLE 1 ARM 10
     Route: 042
     Dates: start: 20231027, end: 20231029
  3. EPCORITAMAB [Suspect]
     Active Substance: EPCORITAMAB
     Indication: Diffuse large B-cell lymphoma stage III
     Dosage: UNK
     Route: 058
     Dates: start: 20231030, end: 20231030
  4. EPCORITAMAB [Suspect]
     Active Substance: EPCORITAMAB
     Dosage: UNK
     Route: 058
     Dates: start: 20231106, end: 20231106
  5. EPCORITAMAB [Suspect]
     Active Substance: EPCORITAMAB
     Dosage: UNK
     Route: 058
     Dates: start: 20231113
  6. CARBOPLATIN [Suspect]
     Active Substance: CARBOPLATIN
     Indication: Diffuse large B-cell lymphoma stage III
     Dosage: 5AUC, EVERY 1 DAY
     Route: 042
     Dates: start: 20231028, end: 20231028
  7. IFOSFAMIDE [Suspect]
     Active Substance: IFOSFAMIDE
     Indication: Diffuse large B-cell lymphoma stage III
     Dosage: CYCLE 1 ARM 10
     Route: 042
     Dates: start: 20231028, end: 20231029
  8. LANSOPRAZOLE [Concomitant]
     Active Substance: LANSOPRAZOLE
     Dosage: UNK
     Dates: start: 20231023
  9. POLARAMINE [Concomitant]
     Active Substance: DEXCHLORPHENIRAMINE MALEATE
     Dosage: UNK
     Dates: start: 20231106, end: 20231113
  10. AMOROLFINE [Concomitant]
     Active Substance: AMOROLFINE
     Dosage: UNK
     Dates: start: 20230909
  11. SODIUM BICARBONATE [Concomitant]
     Active Substance: SODIUM BICARBONATE
     Dosage: UNK
     Dates: start: 20231027
  12. BISOPROLOL [Concomitant]
     Active Substance: BISOPROLOL\BISOPROLOL FUMARATE
     Dosage: UNK
     Dates: start: 20230218
  13. ONDANSETRON [Concomitant]
     Active Substance: ONDANSETRON
     Dosage: UNK
     Dates: start: 20231027, end: 20231029
  14. BACTRIM [Concomitant]
     Active Substance: SULFAMETHOXAZOLE\TRIMETHOPRIM
     Dosage: UNK
     Dates: start: 20231028
  15. CICLOPIROX [Concomitant]
     Active Substance: CICLOPIROX\TOCOPHEROL
     Dosage: UNK
     Dates: start: 20230809
  16. ACETAMINOPHEN [Concomitant]
     Active Substance: ACETAMINOPHEN
     Dosage: UNK
     Dates: start: 20231106, end: 20231113
  17. ACETAMINOPHEN [Concomitant]
     Active Substance: ACETAMINOPHEN
     Dosage: UNK
  18. FOLIC ACID [Concomitant]
     Active Substance: FOLIC ACID
     Dosage: UNK
     Dates: start: 20231026
  19. VALACYCLOVIR HYDROCHLORIDE [Concomitant]
     Active Substance: VALACYCLOVIR HYDROCHLORIDE
     Dosage: UNK
     Dates: start: 20231028
  20. PREDNISONE [Concomitant]
     Active Substance: PREDNISONE
  21. AZITHROMYCIN [Concomitant]
     Active Substance: AZITHROMYCIN
  22. ACUPAN [Concomitant]
     Active Substance: NEFOPAM HYDROCHLORIDE
  23. FILGRASTIM [Concomitant]
     Active Substance: FILGRASTIM
  24. METRONIDAZOLE [Concomitant]
     Active Substance: METRONIDAZOLE
  25. PIPERACILLIN SODIUM\TAZOBACTAM SODIUM [Concomitant]
     Active Substance: PIPERACILLIN SODIUM\TAZOBACTAM SODIUM
  26. PRIMPERAN [Concomitant]
     Active Substance: METOCLOPRAMIDE HYDROCHLORIDE
  27. SOLU-MEDROL [Concomitant]
     Active Substance: METHYLPREDNISOLONE SODIUM SUCCINATE

REACTIONS (4)
  - Superficial vein thrombosis [Not Recovered/Not Resolved]
  - Cytokine release syndrome [Recovered/Resolved]
  - Pyrexia [Not Recovered/Not Resolved]
  - Product use issue [Unknown]

NARRATIVE: CASE EVENT DATE: 20231114
